FAERS Safety Report 16579564 (Version 1)
Quarter: 2019Q3

REPORT INFORMATION
  Report Type: Report from Study
  Country: US (occurrence: US)
  Receive Date: 20190716
  Receipt Date: 20190716
  Transmission Date: 20191004
  Serious: Yes (Hospitalization)
  Sender: FDA-Public Use
  Company Number: US-ACTELION-A-US2019-189469

PATIENT
  Sex: Male

DRUGS (2)
  1. OPSUMIT [Suspect]
     Active Substance: MACITENTAN
     Indication: PULMONARY ARTERIAL HYPERTENSION
     Dosage: 10 MG, QD
     Route: 048
     Dates: start: 201902
  2. OXYGEN. [Concomitant]
     Active Substance: OXYGEN

REACTIONS (8)
  - Pneumonia [Unknown]
  - Dyspnoea exertional [Unknown]
  - Dyspnoea [Unknown]
  - Headache [Recovered/Resolved]
  - Bendopnoea [Unknown]
  - Humidity intolerance [Unknown]
  - Decreased appetite [Recovered/Resolved]
  - Fatigue [Unknown]
